FAERS Safety Report 4985085-6 (Version None)
Quarter: 2006Q2

REPORT INFORMATION
  Report Type: 
  Country: None (occurrence: None)
  Receive Date: 20060419
  Receipt Date: 20060413
  Transmission Date: 20061013
  Serious: Yes (Hospitalization)
  Sender: FDA-Public Use
  Company Number: HQWYE822713APR06

PATIENT
  Age: 91 Year
  Sex: Female

DRUGS (6)
  1. CORDARONE [Suspect]
     Dosage: 200 MG 1X PER 1 DAY ORAL
     Route: 048
     Dates: start: 20051215
  2. BUFLOMEDIL HYDROCHLORIDE (BUFLOMEDIL HYDROCHLORIDE,) [Suspect]
     Dosage: 300 MG 1X PER 1 DAY ORAL
     Route: 048
  3. EFFEXOR [Suspect]
     Dosage: 2 UNITS (37.5 MG TABLET) ORAL
     Route: 048
  4. FUROSEMIDE [Suspect]
     Dosage: 1 UNIT 1X PER 1 DAY ORAL
     Route: 048
  5. NISIS (VALSARTAN,) [Suspect]
     Dosage: 1 UNIT 1X PER 1 DAY ORAL
     Route: 048
  6. PREVISCAN (FLUINDIONE,) [Suspect]
     Dosage: 20 MG 1X PER 1 DAY ORAL
     Route: 048

REACTIONS (4)
  - AGITATION [None]
  - BLOOD THYROID STIMULATING HORMONE INCREASED [None]
  - CONFUSIONAL STATE [None]
  - HYPOTHYROIDISM [None]
